FAERS Safety Report 6254522-1 (Version None)
Quarter: 2009Q3

REPORT INFORMATION
  Report Type: 
  Country: None (occurrence: None)
  Receive Date: 20090702
  Receipt Date: 20090630
  Transmission Date: 20100115
  Serious: Yes (Other)
  Sender: FDA-Public Use
  Company Number: US-BRISTOL-MYERS SQUIBB COMPANY-14684914

PATIENT
  Age: 66 Year
  Sex: Female
  Weight: 92 kg

DRUGS (16)
  1. ORENCIA [Suspect]
     Indication: RHEUMATOID ARTHRITIS
     Dates: start: 20060101
  2. IMURAN [Concomitant]
  3. NEXIUM [Concomitant]
  4. DIOVAN [Concomitant]
  5. DITROPAN [Concomitant]
  6. THYROID TAB [Concomitant]
  7. FOLIC ACID [Concomitant]
  8. COREG [Concomitant]
  9. POTASSIUM CHLORIDE [Concomitant]
  10. LESCOL [Concomitant]
  11. NORVASC [Concomitant]
  12. MULTI-VITAMIN [Concomitant]
  13. TUMS [Concomitant]
  14. VITAMIN D [Concomitant]
  15. MYCELEX [Concomitant]
  16. MAGIC MOUTHWASH [Concomitant]

REACTIONS (1)
  - TONGUE NEOPLASM MALIGNANT STAGE UNSPECIFIED [None]
